FAERS Safety Report 24388614 (Version 2)
Quarter: 2025Q3

REPORT INFORMATION
  Report Type: Report from Study
  Country: US (occurrence: US)
  Receive Date: 20241002
  Receipt Date: 20250803
  Transmission Date: 20251021
  Serious: Yes (Other)
  Sender: ALEXION PHARMACEUTICALS
  Company Number: US-AstraZeneca-CH-00688624A

PATIENT
  Sex: Female

DRUGS (1)
  1. ULTOMIRIS [Suspect]
     Active Substance: RAVULIZUMAB-CWVZ
     Indication: Myasthenia gravis
     Dosage: UNK, Q56, EVERY 8 WEEKS
     Route: 065

REACTIONS (4)
  - Choking [Recovering/Resolving]
  - Therapeutic response shortened [Not Recovered/Not Resolved]
  - Feeling abnormal [Recovering/Resolving]
  - Dysphagia [Recovering/Resolving]
